FAERS Safety Report 17064057 (Version 1)
Quarter: 2019Q4

REPORT INFORMATION
  Report Type: Spontaneous
  Country: US (occurrence: US)
  Receive Date: 20191023
  Receipt Date: 20191023
  Transmission Date: 20200122
  Serious: No
  Sender: FDA-Public Use
  Company Number: None

PATIENT
  Age: 88 Year
  Sex: Male
  Weight: 80.88 kg

DRUGS (2)
  1. APIXABAN [Suspect]
     Active Substance: APIXABAN
     Indication: CARDIAC VENTRICULAR THROMBOSIS
     Route: 048
     Dates: start: 20190821
  2. APIXABAN [Suspect]
     Active Substance: APIXABAN
     Indication: CARDIAC OPERATION
     Route: 048
     Dates: start: 20190817

REACTIONS (1)
  - Epistaxis [None]

NARRATIVE: CASE EVENT DATE: 20190822
